FAERS Safety Report 5011131-X (Version None)
Quarter: 2006Q2

REPORT INFORMATION
  Report Type: 
  Country: None (occurrence: None)
  Receive Date: 20060525
  Receipt Date: 20051114
  Transmission Date: 20061013
  Serious: Yes (Hospitalization)
  Sender: FDA-Public Use
  Company Number: 2005CG01883

PATIENT
  Age: 26369 Day
  Sex: Female

DRUGS (12)
  1. NEXIUM [Suspect]
     Route: 048
     Dates: start: 20050918, end: 20051018
  2. FUCIDINE CAP [Suspect]
     Route: 061
     Dates: start: 20051001, end: 20051001
  3. FUCIDINE CAP [Suspect]
     Route: 061
     Dates: start: 20051001, end: 20051018
  4. PREVISCAN [Concomitant]
     Dates: end: 20051112
  5. PRAXILENE [Concomitant]
  6. AERIUS [Concomitant]
  7. IXPRIM [Concomitant]
  8. RIVOTRIL [Concomitant]
  9. DRIPTANE [Concomitant]
  10. DIANTALVIC [Concomitant]
  11. ENDOTELON [Concomitant]
  12. PYOSTACINE [Concomitant]
     Route: 048
     Dates: start: 20051011, end: 20051018

REACTIONS (9)
  - ANAEMIA [None]
  - BLOOD IMMUNOGLOBULIN A INCREASED [None]
  - CUTANEOUS VASCULITIS [None]
  - HAEMATURIA [None]
  - HYPERTENSION [None]
  - OESOPHAGEAL CANDIDIASIS [None]
  - PROTEINURIA [None]
  - PSEUDOMONAS INFECTION [None]
  - PURPURA [None]
